FAERS Safety Report 5693714-7 (Version None)
Quarter: 2008Q2

REPORT INFORMATION
  Report Type: 
  Country: None (occurrence: None)
  Receive Date: 20080403
  Receipt Date: 20080324
  Transmission Date: 20081010
  Serious: Yes (Other)
  Sender: FDA-Public Use
  Company Number: PHHY2008BR03765

PATIENT
  Age: 72 Year
  Sex: Female
  Weight: 65 kg

DRUGS (7)
  1. ACLASTA [Suspect]
     Dosage: 5 MG/100ML 1 APPLICATION
  2. CALCIUM CARBONATE [Concomitant]
     Indication: OSTEOPOROSIS
     Dosage: 1000 MG, QD
     Route: 048
  3. VITAMIN E [Concomitant]
     Indication: OSTEOPOROSIS
     Dosage: 100 MG 7 DROPS A WEEK
  4. SYNTHROID [Concomitant]
     Indication: HYPOTHYROIDISM
     Dosage: 100 MG, QD
     Route: 048
  5. NORTRIPTYLINE HCL [Concomitant]
     Indication: OSTEOPOROSIS
     Dosage: 18 MG
  6. ACETAMINOPHEN [Concomitant]
     Indication: PAIN
     Dosage: 500 MG
  7. CYCLOBENZAPRINE HCL [Concomitant]
     Indication: OSTEOPOROSIS
     Dosage: 10 MG
     Route: 048

REACTIONS (10)
  - ARTHRALGIA [None]
  - BACK PAIN [None]
  - FEELING HOT [None]
  - HYPERHIDROSIS [None]
  - INJECTION SITE ERYTHEMA [None]
  - INJECTION SITE SWELLING [None]
  - MYALGIA [None]
  - PROCEDURAL PAIN [None]
  - PYREXIA [None]
  - VISION BLURRED [None]
